FAERS Safety Report 4898622-7 (Version None)
Quarter: 2006Q1

REPORT INFORMATION
  Report Type: 
  Country: None (occurrence: None)
  Receive Date: 20060130
  Receipt Date: 20060117
  Transmission Date: 20060701
  Serious: Yes (Hospitalization)
  Sender: FDA-Public Use
  Company Number: FRWYE305017JAN06

PATIENT
  Sex: Male

DRUGS (1)
  1. BISOPROLOL FUMARATE [Suspect]
     Indication: HYPERTENSION
     Dosage: TRANSPLACENTAL
     Route: 064
     Dates: start: 20030101

REACTIONS (24)
  - ACTIVATED PARTIAL THROMBOPLASTIN TIME PROLONGED [None]
  - ASPARTATE AMINOTRANSFERASE INCREASED [None]
  - BLOOD CREATINE PHOSPHOKINASE INCREASED [None]
  - CHORIOMENINGITIS LYMPHOCYTIC [None]
  - COAGULATION FACTOR VII LEVEL DECREASED [None]
  - COAGULATION FACTOR X LEVEL DECREASED [None]
  - CONGENITAL CYTOMEGALOVIRUS INFECTION [None]
  - DEHYDRATION [None]
  - DRUG EXPOSURE DURING PREGNANCY [None]
  - ESCHERICHIA INFECTION [None]
  - FEEDING DISORDER NEONATAL [None]
  - FOETAL HEART RATE DECELERATION [None]
  - GASTROOESOPHAGEAL REFLUX DISEASE [None]
  - HYPERTONIA NEONATAL [None]
  - HYPOGLYCAEMIA NEONATAL [None]
  - HYPOTONIA NEONATAL [None]
  - INFANTILE APNOEIC ATTACK [None]
  - INTRAVENTRICULAR HAEMORRHAGE [None]
  - INTRAVENTRICULAR HAEMORRHAGE NEONATAL [None]
  - JAUNDICE NEONATAL [None]
  - KLEBSIELLA INFECTION [None]
  - MITOCHONDRIAL CYTOPATHY [None]
  - PERIVENTRICULAR LEUKOMALACIA [None]
  - PROTHROMBIN LEVEL DECREASED [None]
